FAERS Safety Report 18403679 (Version 1)
Quarter: 2020Q4

REPORT INFORMATION
  Report Type: Spontaneous
  Country: US (occurrence: US)
  Receive Date: 20201020
  Receipt Date: 20201020
  Transmission Date: 20210114
  Serious: No
  Sender: FDA-Public Use
  Company Number: None

PATIENT
  Age: 32 Year
  Sex: Female
  Weight: 68.4 kg

DRUGS (2)
  1. ELURYNG [Suspect]
     Active Substance: ETHINYL ESTRADIOL\ETONOGESTREL
     Indication: CONTRACEPTION
     Dosage: ?          QUANTITY:1 RING;OTHER FREQUENCY:3 WEEKS IN, 1 WEEK;?
     Route: 067
     Dates: start: 20201012
  2. ELURYNG [Suspect]
     Active Substance: ETHINYL ESTRADIOL\ETONOGESTREL
     Indication: MENORRHAGIA
     Dosage: ?          QUANTITY:1 RING;OTHER FREQUENCY:3 WEEKS IN, 1 WEEK;?
     Route: 067
     Dates: start: 20201012

REACTIONS (4)
  - Abdominal distension [None]
  - Vaginal discharge [None]
  - Headache [None]
  - Mood swings [None]
